FAERS Safety Report 10314742 (Version 1)
Quarter: 2014Q3

REPORT INFORMATION
  Report Type: Spontaneous
  Country: CA (occurrence: CA)
  Receive Date: 20140718
  Receipt Date: 20140718
  Transmission Date: 20150326
  Serious: Yes (Hospitalization)
  Sender: FDA-Public Use
  Company Number: CA-MYLANLABS-2014S1016375

PATIENT
  Age: 53 Year
  Sex: Female

DRUGS (9)
  1. PERINDOPRIL [Concomitant]
     Active Substance: PERINDOPRIL
     Dosage: 4MG DAILY
     Route: 065
  2. BUPROPION [Concomitant]
     Active Substance: BUPROPION
     Dosage: 150MG DAILY
     Route: 065
  3. CITALOPRAM [Concomitant]
     Active Substance: CITALOPRAM HYDROBROMIDE
     Dosage: 30MG DAILY
     Route: 065
  4. ASPIRIN. [Concomitant]
     Active Substance: ASPIRIN
     Dosage: 81MG DAILY
     Route: 065
  5. ATORVASTATIN [Concomitant]
     Active Substance: ATORVASTATIN
     Dosage: 40MG DAILY
     Route: 065
  6. SITAGLIPTIN [Concomitant]
     Active Substance: SITAGLIPTIN
     Dosage: 100MG DAILY
     Route: 065
  7. METFORMIN [Concomitant]
     Active Substance: METFORMIN HYDROCHLORIDE
     Route: 065
  8. LITHIUM [Suspect]
     Active Substance: LITHIUM CARBONATE
     Indication: BIPOLAR I DISORDER
     Dosage: AT BEDTIME
     Route: 065
  9. ZIPRASIDONE [Concomitant]
     Active Substance: ZIPRASIDONE
     Route: 065

REACTIONS (2)
  - Renal failure acute [Recovered/Resolved]
  - Toxicity to various agents [Recovered/Resolved]
